FAERS Safety Report 6389910 (Version 4)
Quarter: 2019Q1

REPORT INFORMATION
  Report Type: Spontaneous
  Country: US (occurrence: US)
  Receive Date: 20070823
  Receipt Date: 20190207
  Transmission Date: 20190418
  Serious: Yes (Other)
  Sender: FDA-Public Use
  Company Number: US-ROCHE-511819

PATIENT
  Age: 24 Year
  Sex: Male

DRUGS (1)
  1. ACCUTANE [Suspect]
     Active Substance: ISOTRETINOIN
     Indication: ACNE
     Dosage: DATE WAS REPORTED AS THE SUMMER OF 2002. FORM:PILL
     Route: 065
     Dates: start: 2002, end: 2002

REACTIONS (6)
  - Major depression [Unknown]
  - Erectile dysfunction [Unknown]
  - Headache [Unknown]
  - Psychotic disorder [Unknown]
  - Tinnitus [Unknown]
  - Homicide [Unknown]

NARRATIVE: CASE EVENT DATE: 20070805
